FAERS Safety Report 8863857 (Version 1)
Quarter: 2012Q4

REPORT INFORMATION
  Report Type: 
  Country: US (occurrence: US)
  Receive Date: 20121024
  Receipt Date: 20121024
  Transmission Date: 20130627
  Serious: No
  Sender: FDA-Public Use
  Company Number: US-AMGEN-USASP2011064429

PATIENT
  Age: 55 Year
  Weight: 77.1 kg

DRUGS (6)
  1. ENBREL [Suspect]
     Indication: PRODUCT USED FOR UNKNOWN INDICATION
     Dosage: 25 mg, q2wk
     Route: 058
  2. METHOTREXATE [Concomitant]
     Dosage: 20 mg, UNK
  3. VITAMIN C [Concomitant]
  4. VITAMIN D [Concomitant]
     Dosage: 1000 unit, UNK
  5. REQUIP [Concomitant]
     Dosage: 3 mg, UNK
  6. FOLIC ACID [Concomitant]
     Dosage: 5 mg, UNK

REACTIONS (1)
  - Bronchitis [Unknown]
